FAERS Safety Report 21573817 (Version 1)
Quarter: 2022Q4

REPORT INFORMATION
  Report Type: Spontaneous
  Country: US (occurrence: None)
  Receive Date: 20221108
  Receipt Date: 20221108
  Transmission Date: 20230112
  Serious: Yes (Death)
  Sender: FDA-Public Use
  Company Number: None

PATIENT
  Age: 48 Year
  Sex: Female
  Weight: 70.99 kg

DRUGS (28)
  1. BRAFTOVI [Suspect]
     Active Substance: ENCORAFENIB
     Indication: Skin cancer
     Dosage: FREQUENCY : TWICE A DAY;?
     Route: 048
     Dates: start: 20191016
  2. MEKTOVI [Suspect]
     Active Substance: BINIMETINIB
     Indication: Skin cancer
     Dosage: FREQUENCY : TWICE A DAY;?
     Route: 048
     Dates: start: 20191016
  3. AMITRIPTYLINE HYDROCHLORIDE [Concomitant]
     Active Substance: AMITRIPTYLINE HYDROCHLORIDE
  4. ARTIFICIAL TEARS OPHTHALMIC [Concomitant]
  5. CYCLOBENZAPRINE HYDROCHLORIDE [Concomitant]
     Active Substance: CYCLOBENZAPRINE HYDROCHLORIDE
  6. DECADRON [Concomitant]
     Active Substance: DEXAMETHASONE
  7. DURAGESIC-100 [Concomitant]
  8. TRANSDERMAL PATCH [Concomitant]
  9. FENTANYL [Concomitant]
     Active Substance: FENTANYL
  10. FERROUS SULFATE [Concomitant]
     Active Substance: FERROUS SULFATE
  11. GABAPENTIN [Concomitant]
     Active Substance: GABAPENTIN
  12. GLYCOLAX [Concomitant]
  13. HYDROCORTISONE [Concomitant]
     Active Substance: HYDROCORTISONE
  14. KEPPRA [Concomitant]
     Active Substance: LEVETIRACETAM
  15. KLOR-CON [Concomitant]
     Active Substance: POTASSIUM CHLORIDE
  16. LEVOTHYROXINE SODIUM [Concomitant]
     Active Substance: LEVOTHYROXINE SODIUM
  17. LIDOCAINE\PRILOCAINE [Concomitant]
     Active Substance: LIDOCAINE\PRILOCAINE
  18. LINZESS [Concomitant]
     Active Substance: LINACLOTIDE
  19. LORAZEPAM [Concomitant]
     Active Substance: LORAZEPAM
  20. NEXIUM [Concomitant]
     Active Substance: ESOMEPRAZOLE MAGNESIUM
  21. ONDANSETRON HCL [Concomitant]
     Active Substance: ONDANSETRON HYDROCHLORIDE
  22. PANTOPRAZOLE [Concomitant]
     Active Substance: PANTOPRAZOLE
  23. PHENERGAN [Concomitant]
     Active Substance: PROMETHAZINE HYDROCHLORIDE
  24. POTASSIUM CHLORIDE [Concomitant]
     Active Substance: POTASSIUM CHLORIDE
  25. PROMETHAZINE [Concomitant]
     Active Substance: PROMETHAZINE HYDROCHLORIDE
  26. SENNA S [Concomitant]
     Active Substance: DOCUSATE SODIUM\SENNA LEAF
  27. VITAMIN D3 [Concomitant]
     Active Substance: CHOLECALCIFEROL
  28. WELLBUTRIN XL [Concomitant]
     Active Substance: BUPROPION HYDROCHLORIDE

REACTIONS (1)
  - Death [None]
